FAERS Safety Report 8918242 (Version 1)
Quarter: 2012Q4

REPORT INFORMATION
  Report Type: 
  Country: IT (occurrence: IT)
  Receive Date: 20121120
  Receipt Date: 20121120
  Transmission Date: 20130627
  Serious: Yes (Life-Threatening)
  Sender: FDA-Public Use
  Company Number: IT-PFIZER INC-2012261498

PATIENT
  Age: 70 Year
  Sex: Male

DRUGS (5)
  1. TRIATEC [Suspect]
     Indication: HYPERTENSION ARTERIAL
     Dosage: 2.5 mg, twice daily (2 in 1 D)
     Route: 048
     Dates: start: 20100101, end: 20120713
  2. OLPRESS [Suspect]
     Indication: HYPERTENSION
     Dosage: 40 mg, (1 in 1 D) one tablet once daily
     Route: 048
     Dates: start: 20100101, end: 20120713
  3. AMLODIPINE/OLMESARTAN MEDOXOMIL [Suspect]
     Indication: HYPERTENSION
     Dosage: [amlodipine besilate 5mg]/ [olmesartan medoxomil 20mg], (1 in 1 D)
     Route: 048
     Dates: start: 20100101, end: 20120713
  4. MODURETIC [Suspect]
     Indication: HYPERTENSION ARTERIAL
     Dosage: [amiloride 50mg/ hydrochlorothiazide 5mg], (1 in 1 D)
     Route: 048
     Dates: start: 20100101, end: 20120713
  5. ATENOLOL [Concomitant]
     Indication: DRUG USE FOR UNKNOWN INDICATION
     Dosage: UNK
     Route: 065

REACTIONS (6)
  - Hyperkalaemia [Recovered/Resolved]
  - Sinus bradycardia [Recovered/Resolved]
  - Hyperhidrosis [Recovered/Resolved]
  - Asthenia [Recovered/Resolved]
  - Tremor [Recovered/Resolved]
  - Hyponatraemia [Unknown]
